FAERS Safety Report 7523706-4 (Version None)
Quarter: 2011Q2

REPORT INFORMATION
  Report Type: 
  Country: None (occurrence: None)
  Receive Date: 20110603
  Receipt Date: 20110531
  Transmission Date: 20111010
  Serious: Yes (Death)
  Sender: FDA-Public Use
  Company Number: US-ASTRAZENECA-2011SE33468

PATIENT
  Age: 24 Year
  Sex: Male

DRUGS (2)
  1. METHADONE HCL [Concomitant]
  2. SEROQUEL XR [Suspect]
     Route: 048

REACTIONS (1)
  - DEATH [None]
